FAERS Safety Report 25463416 (Version 1)
Quarter: 2025Q2

REPORT INFORMATION
  Report Type: Spontaneous
  Country: NL (occurrence: NL)
  Receive Date: 20250620
  Receipt Date: 20250620
  Transmission Date: 20250716
  Serious: Yes (Other)
  Sender: COVIS PHARMA GMBH
  Company Number: None

PATIENT
  Age: 59 Year
  Sex: Male
  Weight: 99 kg

DRUGS (2)
  1. CICLESONIDE [Suspect]
     Active Substance: CICLESONIDE
     Indication: Asthma
     Dosage: 1X PER DAG 2 INHALATIES IN DE OCHTEND
     Dates: start: 20250301
  2. FORMOTEROL [Concomitant]
     Active Substance: FORMOTEROL

REACTIONS (5)
  - Major depression [Recovered/Resolved]
  - Weight increased [Recovering/Resolving]
  - Dysphonia [Recovered/Resolved]
  - Anxiety [Recovered/Resolved]
  - Acne [Recovered/Resolved]
